FAERS Safety Report 8082388 (Version 4)
Quarter: 2012Q4

REPORT INFORMATION
  Report Type: 
  Country: CA (occurrence: CA)
  Receive Date: 20110809
  Receipt Date: 20121030
  Transmission Date: 20130627
  Serious: Yes (Other)
  Sender: FDA-Public Use
  Company Number: CA-GLAXOSMITHKLINE-A0931785A

PATIENT
  Sex: Male
  Weight: 72.7 kg

DRUGS (7)
  1. ADVAIR [Suspect]
     Indication: CHRONIC OBSTRUCTIVE PULMONARY DISEASE
     Dosage: 1PUFF Per day
     Route: 055
     Dates: start: 200908
  2. SPIRIVA [Suspect]
     Indication: PRODUCT USED FOR UNKNOWN INDICATION
     Route: 065
  3. DIETARY SUPPLEMENT [Suspect]
     Indication: ARTHRALGIA
     Route: 065
  4. ALTACE [Concomitant]
     Dosage: 2.5MG Per day
     Route: 065
  5. LOSEC [Concomitant]
     Indication: GASTROOESOPHAGEAL REFLUX DISEASE
  6. ROLAIDS [Concomitant]
  7. BLOOD PRESSURE MEDICATION [Concomitant]

REACTIONS (12)
  - Neck pain [Recovered/Resolved]
  - Pain in extremity [Recovering/Resolving]
  - Musculoskeletal pain [Recovering/Resolving]
  - Movement disorder [Recovering/Resolving]
  - Musculoskeletal stiffness [Recovering/Resolving]
  - Dyspnoea [Unknown]
  - Arthritis [Unknown]
  - Arthralgia [Unknown]
  - Insomnia [Unknown]
  - Drug ineffective [Unknown]
  - Pneumonia [Unknown]
  - Pharyngitis [Recovered/Resolved]
